FAERS Safety Report 11050297 (Version 1)
Quarter: 2015Q2

REPORT INFORMATION
  Report Type: Spontaneous
  Country: AT (occurrence: AT)
  Receive Date: 20150421
  Receipt Date: 20150421
  Transmission Date: 20150821
  Serious: Yes (Life-Threatening, Hospitalization, Other)
  Sender: FDA-Public Use
  Company Number: AT-PAR PHARMACEUTICAL, INC-2015SCPR010495

PATIENT

DRUGS (4)
  1. ASPIRIN                            /00002701/ [Suspect]
     Active Substance: ASPIRIN
     Indication: INTERVERTEBRAL DISCITIS
     Dosage: UNK UNK, UNKNOWN
     Route: 065
  2. IBUPROFEN. [Suspect]
     Active Substance: IBUPROFEN
     Indication: ANALGESIC THERAPY
     Dosage: 400 MG, BID
     Route: 065
     Dates: start: 201210
  3. TICAGRELOR [Concomitant]
     Active Substance: TICAGRELOR
     Indication: INTERVERTEBRAL DISCITIS
     Dosage: UNK UNK, UNKNOWN
     Route: 065
  4. ANTIBIOTICS [Concomitant]
     Active Substance: UNSPECIFIED INGREDIENT
     Indication: INTERVERTEBRAL DISCITIS
     Dosage: UNK UNK, UNKNOWN
     Route: 065

REACTIONS (5)
  - Left ventricular dysfunction [Recovered/Resolved]
  - Thrombosis in device [Recovered/Resolved]
  - Drug interaction [Unknown]
  - Acute myocardial infarction [Recovered/Resolved]
  - Cardiogenic shock [Recovered/Resolved]

NARRATIVE: CASE EVENT DATE: 2012
